FAERS Safety Report 5518995-1 (Version None)
Quarter: 2007Q4

REPORT INFORMATION
  Report Type: 
  Country: None (occurrence: None)
  Receive Date: 20071116
  Receipt Date: 20071109
  Transmission Date: 20080405
  Serious: Yes (Other)
  Sender: FDA-Public Use
  Company Number: PHEH2007US14553

PATIENT
  Sex: Male

DRUGS (3)
  1. TEKTURNA [Suspect]
     Dosage: 150 MG, UNK
     Dates: start: 20070901
  2. MICARDIS HCT [Suspect]
     Dosage: 80/150 MG
     Dates: start: 20070801, end: 20071101
  3. LIPITOR [Concomitant]

REACTIONS (3)
  - MYALGIA [None]
  - PAIN IN EXTREMITY [None]
  - PHYSICAL DISABILITY [None]
